FAERS Safety Report 8792507 (Version 5)
Quarter: 2013Q3

REPORT INFORMATION
  Report Type: Report from Study
  Country: CA (occurrence: CA)
  Receive Date: 20120918
  Receipt Date: 20130718
  Transmission Date: 20140515
  Serious: Yes (Other)
  Sender: FDA-Public Use
  Company Number: CA-ROCHE-1127295

PATIENT
  Age: 77 Year
  Sex: Female
  Weight: 55.7 kg

DRUGS (25)
  1. RITUXAN [Suspect]
     Indication: RHEUMATOID VASCULITIS
     Dosage: LAST DOSE ON 19/APR/2012
     Route: 042
     Dates: start: 20110926
  2. RITUXAN [Suspect]
     Indication: POLYNEUROPATHY
     Route: 065
     Dates: start: 20111013
  3. RITUXAN [Suspect]
     Route: 065
     Dates: start: 20120405
  4. RITUXAN [Suspect]
     Route: 065
     Dates: start: 20120419
  5. LEUCOVORIN [Concomitant]
     Route: 048
     Dates: start: 19940118
  6. LORAZEPAM [Concomitant]
     Route: 048
     Dates: start: 19960611
  7. ACETYLSALICYLIC ACID [Concomitant]
     Route: 065
     Dates: start: 20030125
  8. ACTONEL [Concomitant]
     Route: 048
     Dates: start: 20041116
  9. NIFEDIPINE [Concomitant]
     Route: 048
     Dates: start: 20051018
  10. CALCITE D [Concomitant]
     Dosage: DOSE 500- 400 (UNIT NOT REPORTED), FREQUENCY 1000 IN TOTAL.
     Route: 048
     Dates: start: 20070420
  11. METHOTREXATE [Concomitant]
     Route: 048
     Dates: start: 20070824
  12. NEXIUM [Concomitant]
     Route: 048
     Dates: start: 20071002
  13. LIPITOR [Concomitant]
     Route: 048
     Dates: start: 20100427
  14. HYDROCHLOROTHIAZIDE [Concomitant]
     Route: 048
     Dates: start: 20100425
  15. SYNTHROID [Concomitant]
     Route: 048
     Dates: start: 20110116
  16. DOCUSATE SODIUM [Concomitant]
     Route: 048
     Dates: start: 20120130
  17. BISOPROLOL FUMARATE [Concomitant]
     Route: 048
     Dates: start: 20120130
  18. ACETAMINOPHEN [Concomitant]
     Route: 048
     Dates: start: 20120130
  19. ACETAMINOPHEN [Concomitant]
     Route: 048
     Dates: start: 20110926
  20. MONOPRIL [Concomitant]
     Route: 048
     Dates: start: 20041116
  21. CELEBREX [Concomitant]
  22. PLAQUENIL [Concomitant]
  23. DIPHENHYDRAMINE HCL [Concomitant]
     Route: 048
     Dates: start: 20110926
  24. METHYLPREDNISOLONE [Concomitant]
     Route: 042
     Dates: start: 20110926
  25. VITAMIN B12 [Concomitant]

REACTIONS (5)
  - Squamous cell carcinoma [Not Recovered/Not Resolved]
  - Skin cancer [Not Recovered/Not Resolved]
  - Rheumatoid vasculitis [Not Recovered/Not Resolved]
  - Polyneuropathy [Not Recovered/Not Resolved]
  - Infusion related reaction [Recovered/Resolved]
